FAERS Safety Report 17791785 (Version 2)
Quarter: 2020Q2

REPORT INFORMATION
  Report Type: Spontaneous
  Country: AR (occurrence: AR)
  Receive Date: 20200515
  Receipt Date: 20200522
  Transmission Date: 20200714
  Serious: Yes (Other)
  Sender: FDA-Public Use
  Company Number: AR-PFIZER INC-2020193591

PATIENT
  Age: 76 Year
  Sex: Male

DRUGS (2)
  1. TAFIROL 1 G [Concomitant]
     Dosage: UNK
  2. XELJANZ [Suspect]
     Active Substance: TOFACITINIB CITRATE
     Indication: RHEUMATOID ARTHRITIS
     Dosage: 5 MG, 2X/DAY
     Dates: start: 20190102, end: 202003

REACTIONS (5)
  - Asthenia [Recovering/Resolving]
  - Spinal fracture [Not Recovered/Not Resolved]
  - Fall [Unknown]
  - Pain [Unknown]
  - Mobility decreased [Unknown]
